FAERS Safety Report 4788172-0 (Version None)
Quarter: 2005Q3

REPORT INFORMATION
  Report Type: 
  Country: None (occurrence: None)
  Receive Date: 20050920
  Receipt Date: 20040728
  Transmission Date: 20060218
  Serious: Yes (Other)
  Sender: FDA-Public Use
  Company Number: PHEH2004US05789

PATIENT
  Age: 79 Year
  Sex: Female
  Weight: 105.7 kg

DRUGS (3)
  1. FEMARA [Suspect]
     Indication: BREAST CANCER
     Dosage: 2.5 MG, QD
     Dates: start: 20031121
  2. TOPROL-XL [Concomitant]
  3. AVAPRO [Concomitant]

REACTIONS (1)
  - BLOOD PRESSURE INCREASED [None]
